FAERS Safety Report 17569989 (Version 2)
Quarter: 2022Q1

REPORT INFORMATION
  Report Type: Spontaneous
  Country: US (occurrence: US)
  Receive Date: 20200323
  Receipt Date: 20220321
  Transmission Date: 20220423
  Serious: No
  Sender: FDA-Public Use
  Company Number: US-AUROBINDO-AUR-APL-2019-034628

PATIENT
  Sex: Female

DRUGS (1)
  1. LAMOTRIGINE [Suspect]
     Active Substance: LAMOTRIGINE
     Indication: Major depression
     Dosage: 1 DOSAGE FORM, DAILY
     Route: 065
     Dates: start: 20190510

REACTIONS (4)
  - Foreign body in throat [Unknown]
  - Product use complaint [Unknown]
  - Product shape issue [Unknown]
  - Product size issue [Unknown]
